FAERS Safety Report 8613303-1 (Version None)
Quarter: 2012Q3

REPORT INFORMATION
  Report Type: 
  Country: None (occurrence: None)
  Receive Date: 20120822
  Receipt Date: 20120806
  Transmission Date: 20120928
  Serious: Yes (Hospitalization)
  Sender: FDA-Public Use
  Company Number: JP-009507513-1208JPN003948

PATIENT

DRUGS (3)
  1. COSOPT OPHTHALMIC SOLUTION [Suspect]
     Indication: GLAUCOMA
     Route: 047
     Dates: start: 20110713, end: 20111108
  2. AMARYL [Concomitant]
     Indication: DIABETES MELLITUS
     Route: 048
  3. METFORMIN HCL [Concomitant]
     Indication: DIABETES MELLITUS
     Route: 048

REACTIONS (1)
  - ADVERSE EVENT [None]
